FAERS Safety Report 4980881-3 (Version None)
Quarter: 2006Q2

REPORT INFORMATION
  Report Type: 
  Country: None (occurrence: None)
  Receive Date: 20060424
  Receipt Date: 20060329
  Transmission Date: 20061013
  Serious: Yes (Hospitalization)
  Sender: FDA-Public Use
  Company Number: US-MERCK-0604USA00116

PATIENT
  Age: 67 Year
  Sex: Male
  Weight: 100 kg

DRUGS (7)
  1. VIOXX [Suspect]
     Indication: ARTHRITIS
     Route: 048
     Dates: start: 19990101, end: 20010101
  2. VIOXX [Suspect]
     Indication: OSTEOARTHRITIS
     Route: 048
     Dates: start: 19990101, end: 20010101
  3. THEO-DUR [Concomitant]
     Indication: ASTHMA
     Route: 065
     Dates: start: 19990101, end: 20010101
  4. PREDNESOL [Concomitant]
     Indication: ASTHMA
     Route: 065
     Dates: start: 19990101, end: 20010101
  5. ACCOLATE [Concomitant]
     Indication: ASTHMA
     Route: 065
  6. [THERAPY UNSPECIFIED] [Concomitant]
     Route: 065
     Dates: start: 19990101, end: 20010101
  7. DIUREX (FUROSEMIDE) [Concomitant]
     Route: 065

REACTIONS (15)
  - ASTHMA [None]
  - CARDIAC DISORDER [None]
  - CARDIAC FAILURE CONGESTIVE [None]
  - CHEST PAIN [None]
  - CONDITION AGGRAVATED [None]
  - DIABETES MELLITUS [None]
  - GASTRIC DISORDER [None]
  - HAEMORRHOIDS [None]
  - HYPERCHLORHYDRIA [None]
  - HYPERHIDROSIS [None]
  - MYOCARDIAL INFARCTION [None]
  - PNEUMONIA [None]
  - PRESCRIBED OVERDOSE [None]
  - SLEEP APNOEA SYNDROME [None]
  - VOMITING [None]
